FAERS Safety Report 4475763-X (Version None)
Quarter: 2004Q3

REPORT INFORMATION
  Report Type: 
  Country: None (occurrence: None)
  Receive Date: 20040923
  Receipt Date: 20040721
  Transmission Date: 20050211
  Serious: No
  Sender: FDA-Public Use
  Company Number: USA040772072

PATIENT
  Age: 82 Year
  Sex: Female
  Weight: 57 kg

DRUGS (7)
  1. FORTEO [Suspect]
     Indication: OSTEOPOROSIS
     Dosage: 20 UG AT BEDTIME
     Dates: start: 20040401
  2. CALCIUM WITH VITAMIN D [Concomitant]
  3. COUMADIN [Concomitant]
  4. POTASSIUM [Concomitant]
  5. MAGNESIUM OXIDE [Concomitant]
  6. FOSAMAX [Concomitant]
  7. DETROL (TOLTERODINE) [Concomitant]

REACTIONS (7)
  - ASTHENIA [None]
  - DIZZINESS [None]
  - MOBILITY DECREASED [None]
  - MUSCLE CRAMP [None]
  - NERVOUSNESS [None]
  - SHOULDER DEFORMITY [None]
  - TREMOR [None]
